FAERS Safety Report 20387615 (Version 1)
Quarter: 2022Q1

REPORT INFORMATION
  Report Type: Report from Study
  Country: US (occurrence: US)
  Receive Date: 20220127
  Receipt Date: 20220127
  Transmission Date: 20220424
  Serious: No
  Sender: FDA-Public Use
  Company Number: US-ACADIA PHARMACEUTICALS INC.-ACA-2022-PIM-000040

PATIENT
  Sex: Male

DRUGS (11)
  1. NUPLAZID [Suspect]
     Active Substance: PIMAVANSERIN TARTRATE
     Indication: Parkinson^s disease
     Dosage: 34 MILLIGRAM, QD
     Route: 048
  2. CARVEDILOL [Concomitant]
     Active Substance: CARVEDILOL
  3. ALLOPURINOL [Concomitant]
     Active Substance: ALLOPURINOL
  4. MEMANTINE [Concomitant]
     Active Substance: MEMANTINE
  5. CICLOPIROX [Concomitant]
     Active Substance: CICLOPIROX
     Dosage: 0.77% CREAM (GM)
  6. GLIPIZIDE [Concomitant]
     Active Substance: GLIPIZIDE
  7. ESCITALOPRAM OXALATE [Concomitant]
     Active Substance: ESCITALOPRAM OXALATE
  8. FINASTERIDE [Concomitant]
     Active Substance: FINASTERIDE
  9. FLUTICASONE PROPIONATE [Concomitant]
     Active Substance: FLUTICASONE PROPIONATE
  10. LORAZEPAM [Concomitant]
     Active Substance: LORAZEPAM
  11. MODERNA COVID-19 VACCINE [Concomitant]
     Active Substance: ELASOMERAN

REACTIONS (1)
  - Body temperature abnormal [Unknown]
